FAERS Safety Report 13801174 (Version 1)
Quarter: 2017Q3

REPORT INFORMATION
  Report Type: Spontaneous
  Country: US (occurrence: US)
  Receive Date: 20170727
  Receipt Date: 20170727
  Transmission Date: 20171127
  Serious: No
  Sender: FDA-Public Use
  Company Number: US-BAUSCH-BL-2017-018792

PATIENT
  Age: 48 Year
  Sex: Male
  Weight: 81.72 kg

DRUGS (3)
  1. APRISO [Concomitant]
     Active Substance: MESALAMINE
     Indication: PRODUCT USED FOR UNKNOWN INDICATION
  2. UCERIS [Suspect]
     Active Substance: BUDESONIDE
     Indication: COLITIS ULCERATIVE
     Dosage: ONE APPLICATION ONCE IN THE MORNING AND ONCE IN THE EVENING; STARTED ABOUT 5 DAYS AGO
     Route: 054
     Dates: start: 20170604
  3. PREDNISONE. [Concomitant]
     Active Substance: PREDNISONE
     Indication: PRODUCT USED FOR UNKNOWN INDICATION

REACTIONS (3)
  - Wrong technique in product usage process [Unknown]
  - Expulsion of medication [Unknown]
  - Flatulence [Unknown]

NARRATIVE: CASE EVENT DATE: 20170608
